FAERS Safety Report 12455435 (Version 1)
Quarter: 2016Q2

REPORT INFORMATION
  Report Type: Report from Study
  Country: US (occurrence: US)
  Receive Date: 20160610
  Receipt Date: 20160610
  Transmission Date: 20160815
  Serious: Yes (Hospitalization, Other)
  Sender: FDA-Public Use
  Company Number: US-SA-2016SA108835

PATIENT
  Age: 43 Year
  Sex: Male

DRUGS (1)
  1. CAMPATH [Suspect]
     Active Substance: ALEMTUZUMAB
     Route: 065

REACTIONS (5)
  - Malaise [Not Recovered/Not Resolved]
  - Hypokalaemia [Unknown]
  - Nocardiosis [Unknown]
  - Hypoalbuminaemia [Unknown]
  - Pyrexia [Unknown]
